FAERS Safety Report 7098684-5 (Version None)
Quarter: 2010Q4

REPORT INFORMATION
  Report Type: 
  Country: None (occurrence: None)
  Receive Date: 20101112
  Receipt Date: 20080229
  Transmission Date: 20110411
  Serious: No
  Sender: FDA-Public Use
  Company Number: US-KINGPHARMUSA00001-K200800267

PATIENT
  Age: 32 Year
  Sex: Female

DRUGS (1)
  1. EPIPEN [Suspect]
     Dosage: UNK, SINGLE

REACTIONS (2)
  - ACCIDENTAL EXPOSURE [None]
  - INJECTION SITE HAEMATOMA [None]
